FAERS Safety Report 10543695 (Version 1)
Quarter: 2014Q4

REPORT INFORMATION
  Report Type: Spontaneous
  Country: AU (occurrence: AU)
  Receive Date: 20141027
  Receipt Date: 20141027
  Transmission Date: 20150529
  Serious: Yes (Other)
  Sender: FDA-Public Use
  Company Number: AU-BAYER-2014-155369

PATIENT
  Age: 52 Year
  Sex: Female

DRUGS (1)
  1. ULTRAVIST [Suspect]
     Active Substance: IOPROMIDE
     Dosage: UNK, ONCE
     Dates: start: 20141021, end: 20141021

REACTIONS (5)
  - Emotional distress [None]
  - Swelling face [None]
  - Pruritus [None]
  - Swollen tongue [None]
  - Agitation [None]

NARRATIVE: CASE EVENT DATE: 20141021
